FAERS Safety Report 9929034 (Version 1)
Quarter: 2014Q1

REPORT INFORMATION
  Report Type: Spontaneous
  Country: FR (occurrence: None)
  Receive Date: 20140225
  Receipt Date: 20140225
  Transmission Date: 20141002
  Serious: Yes (Other)
  Sender: FDA-Public Use
  Company Number: BTG00104

PATIENT
  Sex: 0

DRUGS (2)
  1. VORAXAZE (GLUCARPIDASE) POWDER FOR SOLUTION [Suspect]
     Indication: TOXICITY TO VARIOUS AGENTS
     Dosage: SINGLE
  2. METHOTREXATE (METHOTREXATE) [Suspect]
     Indication: PRODUCT USED FOR UNKNOWN INDICATION

REACTIONS (1)
  - Renal failure acute [None]
